FAERS Safety Report 19313108 (Version 3)
Quarter: 2021Q2

REPORT INFORMATION
  Report Type: Report from Study
  Country: FR (occurrence: FR)
  Receive Date: 20210527
  Receipt Date: 20210614
  Transmission Date: 20210717
  Serious: Yes (Hospitalization, Other)
  Sender: FDA-Public Use
  Company Number: NVSC2021FR114544

PATIENT
  Age: 58 Year
  Sex: Male

DRUGS (4)
  1. CYTARABINE. [Suspect]
     Active Substance: CYTARABINE
     Indication: PRODUCT USED FOR UNKNOWN INDICATION
     Dosage: 2120 MG
     Route: 065
     Dates: start: 20210419, end: 20210425
  2. RYDAPT [Suspect]
     Active Substance: MIDOSTAURIN
     Indication: PRODUCT USED FOR UNKNOWN INDICATION
     Dosage: 100 MG
     Route: 065
     Dates: start: 20210426, end: 20210507
  3. DAUNORUBICIN [Suspect]
     Active Substance: DAUNORUBICIN
     Indication: PRODUCT USED FOR UNKNOWN INDICATION
     Dosage: 123.5 MG
     Route: 065
     Dates: start: 20210419, end: 20210421
  4. CYTARABINE. [Suspect]
     Active Substance: CYTARABINE
     Dosage: 4120 MG
     Route: 065
     Dates: start: 20210419, end: 20210425

REACTIONS (15)
  - Tachycardia [Unknown]
  - Pyrexia [Recovered/Resolved]
  - Neutropenia [Recovered/Resolved]
  - Granulocytosis [Unknown]
  - Escherichia sepsis [Recovered/Resolved]
  - Intervertebral discitis [Unknown]
  - Tissue infiltration [Unknown]
  - Dermatitis [Unknown]
  - Vomiting [Unknown]
  - Back pain [Unknown]
  - Bone marrow failure [Unknown]
  - Induration [Unknown]
  - Pneumocystis jirovecii infection [Unknown]
  - Lung disorder [Unknown]
  - Nodule [Unknown]

NARRATIVE: CASE EVENT DATE: 20210429
